FAERS Safety Report 10520814 (Version 21)
Quarter: 2016Q4

REPORT INFORMATION
  Report Type: Spontaneous
  Country: AT (occurrence: AT)
  Receive Date: 20141015
  Receipt Date: 20161219
  Transmission Date: 20170206
  Serious: Yes (Death, Hospitalization, Other)
  Sender: FDA-Public Use
  Company Number: PHHY2014AT109028

PATIENT
  Sex: Female

DRUGS (1)
  1. GILENYA [Suspect]
     Active Substance: FINGOLIMOD HYDROCHLORIDE
     Indication: MULTIPLE SCLEROSIS
     Dosage: UNK
     Route: 065

REACTIONS (28)
  - Metabolic alkalosis [Unknown]
  - Balance disorder [Unknown]
  - Aphonia [Unknown]
  - Diarrhoea [Unknown]
  - Gastrointestinal disorder [Unknown]
  - Gait disturbance [Unknown]
  - Oropharyngeal pain [Unknown]
  - Movement disorder [Unknown]
  - Motor dysfunction [Unknown]
  - Renal pain [Unknown]
  - Pain [Unknown]
  - Fatigue [Unknown]
  - Fracture [Unknown]
  - General physical health deterioration [Unknown]
  - Urinary tract infection [Unknown]
  - Multiple sclerosis relapse [Unknown]
  - Malaise [Unknown]
  - Gastrointestinal infection [Unknown]
  - Multiple sclerosis [Unknown]
  - Discomfort [Unknown]
  - pH urine decreased [Recovered/Resolved]
  - Abdominal discomfort [Recovered/Resolved]
  - Viral infection [Unknown]
  - Somnolence [Unknown]
  - Neuralgia [Unknown]
  - Death [Fatal]
  - Nasopharyngitis [Unknown]
  - Disturbance in attention [Unknown]

NARRATIVE: CASE EVENT DATE: 20140826
